FAERS Safety Report 12010336 (Version 1)
Quarter: 2016Q1

REPORT INFORMATION
  Report Type: Spontaneous
  Country: US (occurrence: None)
  Receive Date: 20160204
  Receipt Date: 20160204
  Transmission Date: 20160526
  Serious: Yes (Hospitalization)
  Sender: FDA-Public Use
  Company Number: None

PATIENT
  Age: 62 Year
  Sex: Female
  Weight: 63.5 kg

DRUGS (5)
  1. METFORMIN HYDROCHLORIDE. [Suspect]
     Active Substance: METFORMIN HYDROCHLORIDE
     Dates: end: 20160101
  2. LORAZEPAM. [Concomitant]
     Active Substance: LORAZEPAM
  3. ONDANSETRON [Concomitant]
     Active Substance: ONDANSETRON
  4. OXCARBAZEPINIE [Concomitant]
  5. VENLAFAXINE [Concomitant]
     Active Substance: VENLAFAXINE HYDROCHLORIDE

REACTIONS (4)
  - Headache [None]
  - Dizziness [None]
  - Concussion [None]
  - Head injury [None]

NARRATIVE: CASE EVENT DATE: 20160101
